FAERS Safety Report 9274770 (Version 1)
Quarter: 2013Q2

REPORT INFORMATION
  Report Type: Spontaneous
  Country: US (occurrence: None)
  Receive Date: 20130429
  Receipt Date: 20130429
  Transmission Date: 20140414
  Serious: Yes (Other)
  Sender: FDA-Public Use
  Company Number: UCM201304-000024

PATIENT
  Age: 52 Year
  Sex: Male

DRUGS (4)
  1. CLONIDINE [Suspect]
     Indication: HYPERTENSION
  2. FERROUS SULFIDE [Suspect]
  3. HYDRALAZINE [Suspect]
  4. LACTULOSE [Suspect]

REACTIONS (1)
  - Gastrointestinal tract mucosal pigmentation [None]
